FAERS Safety Report 19050809 (Version 3)
Quarter: 2021Q4

REPORT INFORMATION
  Report Type: Spontaneous
  Country: PL (occurrence: PL)
  Receive Date: 20210324
  Receipt Date: 20211110
  Transmission Date: 20220304
  Serious: Yes (Other)
  Sender: FDA-Public Use
  Company Number: PL-SA-SAC20210309000099

PATIENT
  Age: 53 Year
  Sex: Male

DRUGS (6)
  1. FINASTERIDE [Suspect]
     Active Substance: FINASTERIDE
     Indication: Benign prostatic hyperplasia
     Dosage: 1 DOSAGE FORM, ONCE A DAY
     Route: 065
     Dates: start: 201812
  2. TAMSULOSIN HYDROCHLORIDE [Suspect]
     Active Substance: TAMSULOSIN HYDROCHLORIDE
     Indication: Benign prostatic hyperplasia
     Dosage: 0.4 MILLIGRAM, ONCE A DAY
     Route: 048
  3. TAMSULOSIN HYDROCHLORIDE [Suspect]
     Active Substance: TAMSULOSIN HYDROCHLORIDE
     Dosage: 0.5 DOSAGE FORM, ONCE A DAY
     Route: 048
  4. TAMSULOSIN HYDROCHLORIDE [Suspect]
     Active Substance: TAMSULOSIN HYDROCHLORIDE
     Indication: Benign prostatic hyperplasia
     Dosage: 0.5 MILLIGRAM, ONCE A DAY
     Route: 048
  5. TAMSULOSIN HYDROCHLORIDE [Suspect]
     Active Substance: TAMSULOSIN HYDROCHLORIDE
     Dosage: 0.4 MILLIGRAM, ONCE A DAY
     Route: 048
     Dates: start: 201812
  6. TAMSULOSIN HYDROCHLORIDE [Suspect]
     Active Substance: TAMSULOSIN HYDROCHLORIDE
     Dosage: 0.4 MILLIGRAM, ONCE A DAY
     Route: 048
     Dates: start: 202103

REACTIONS (13)
  - Syncope [Recovered/Resolved]
  - Sleep disorder [Not Recovered/Not Resolved]
  - Body temperature increased [Recovered/Resolved]
  - Depression [Unknown]
  - Cardiovascular disorder [Recovered/Resolved]
  - Bradyphrenia [Unknown]
  - Proctalgia [Unknown]
  - Fatigue [Unknown]
  - Hypotension [Unknown]
  - Constipation [Unknown]
  - Somnolence [Unknown]
  - Mental impairment [Unknown]
  - Wrong technique in product usage process [Unknown]

NARRATIVE: CASE EVENT DATE: 20200101
